FAERS Safety Report 13831303 (Version 2)
Quarter: 2017Q3

REPORT INFORMATION
  Report Type: Spontaneous
  Country: GB (occurrence: GB)
  Receive Date: 20170803
  Receipt Date: 20170911
  Transmission Date: 20171127
  Serious: Yes (Other)
  Sender: FDA-Public Use
  Company Number: GB-009507513-1707GBR013062

PATIENT
  Age: 50 Year
  Sex: Female

DRUGS (12)
  1. MEBEVERINE [Concomitant]
     Active Substance: MEBEVERINE
  2. OMEPRAZOLE. [Concomitant]
     Active Substance: OMEPRAZOLE
  3. MELATONIN [Concomitant]
     Active Substance: MELATONIN
  4. SINEMET [Suspect]
     Active Substance: CARBIDOPA\LEVODOPA
     Dosage: 1 TABLET, Q3H
     Route: 048
     Dates: start: 201703
  5. SEBEX-T [Concomitant]
  6. FULTIUM D3 [Concomitant]
     Active Substance: CHOLECALCIFEROL
  7. PREDNISOLONE. [Concomitant]
     Active Substance: PREDNISOLONE
  8. ONDANSETRON [Concomitant]
     Active Substance: ONDANSETRON
  9. ASPIRIN. [Concomitant]
     Active Substance: ASPIRIN
  10. BUTRANS [Concomitant]
     Active Substance: BUPRENORPHINE
  11. ADIPEX-P [Concomitant]
     Active Substance: PHENTERMINE HYDROCHLORIDE
  12. PLAQUENIL [Concomitant]
     Active Substance: HYDROXYCHLOROQUINE SULFATE

REACTIONS (8)
  - Parkinson^s disease [Unknown]
  - Haemorrhage [Unknown]
  - Thrombosis [Unknown]
  - Bladder spasm [Unknown]
  - Urinary incontinence [Unknown]
  - Systemic lupus erythematosus [Unknown]
  - Abdominal distension [Unknown]
  - Diarrhoea [Unknown]

NARRATIVE: CASE EVENT DATE: 2017
